FAERS Safety Report 9425108 (Version 2)
Quarter: 2013Q3

REPORT INFORMATION
  Report Type: Spontaneous
  Country: BA (occurrence: BA)
  Receive Date: 20130729
  Receipt Date: 20130916
  Transmission Date: 20140515
  Serious: Yes (Other)
  Sender: FDA-Public Use
  Company Number: BA-GLAXOSMITHKLINE-B0903194B

PATIENT
  Sex: Male
  Weight: 3.9 kg

DRUGS (8)
  1. LAMICTAL [Suspect]
     Indication: EPILEPSY
     Dosage: 100MG PER DAY
     Route: 064
  2. LAMICTAL [Suspect]
     Indication: EPILEPSY
     Dosage: 200MG PER DAY
     Route: 064
     Dates: end: 20130617
  3. LAMICTAL [Suspect]
     Indication: EPILEPSY
     Dosage: 225MG PER DAY
     Route: 064
     Dates: start: 20130618
  4. DEPAKINE [Suspect]
     Indication: EPILEPSY
     Dosage: 600MG PER DAY
     Route: 064
  5. FOLACIN [Suspect]
     Indication: PREGNANCY
     Route: 064
  6. PRENATAL [Suspect]
     Indication: PREGNANCY
     Route: 064
  7. VITAMIN K [Suspect]
     Indication: PREGNANCY
     Route: 064
     Dates: start: 20130617
  8. LAMICTAL [Suspect]
     Indication: PRODUCT USED FOR UNKNOWN INDICATION
     Dosage: 100MG TWICE PER DAY
     Route: 065

REACTIONS (4)
  - Urinary tract infection [Recovering/Resolving]
  - C-reactive protein increased [Recovering/Resolving]
  - Foetal exposure during pregnancy [Unknown]
  - Exposure during breast feeding [Unknown]
